FAERS Safety Report 8553154 (Version 3)
Quarter: 2013Q2

REPORT INFORMATION
  Report Type: Spontaneous
  Country: CA (occurrence: CA)
  Receive Date: 20120509
  Receipt Date: 20130426
  Transmission Date: 20140414
  Serious: Yes (Other)
  Sender: FDA-Public Use
  Company Number: CA-JNJFOC-20120501065

PATIENT
  Age: 57 Year
  Sex: Male
  Weight: 73 kg

DRUGS (6)
  1. REMICADE [Suspect]
     Indication: CROHN^S DISEASE
     Route: 042
     Dates: end: 20120312
  2. REMICADE [Suspect]
     Indication: CROHN^S DISEASE
     Route: 042
     Dates: start: 20110427
  3. REMICADE [Suspect]
     Indication: CROHN^S DISEASE
     Route: 042
     Dates: start: 20120305
  4. METFORMIN [Concomitant]
     Route: 065
  5. ALTACE [Concomitant]
     Route: 065
  6. ACETYL SALICYLIC ACID [Concomitant]
     Route: 065

REACTIONS (2)
  - Neoplasm [Recovering/Resolving]
  - Perineal pain [Not Recovered/Not Resolved]
